FAERS Safety Report 6616986-0 (Version None)
Quarter: 2010Q1

REPORT INFORMATION
  Report Type: 
  Country: None (occurrence: None)
  Receive Date: 20100301
  Receipt Date: 20100216
  Transmission Date: 20100710
  Serious: Yes (Hospitalization)
  Sender: FDA-Public Use
  Company Number: RENA-1000610

PATIENT
  Age: 79 Year
  Sex: Male
  Weight: 59.2 kg

DRUGS (7)
  1. RENAGEL [Suspect]
     Indication: HYPERPHOSPHATAEMIA
     Dosage: 1.5 G, TID, ORAL
     Route: 048
     Dates: start: 20060511, end: 20090801
  2. RENAGEL [Suspect]
     Indication: MELAENA
     Dosage: 1.5 G, TID, ORAL
     Route: 048
     Dates: start: 20060511, end: 20090801
  3. MUCOSTA (REBAMIPIDE) TABLET [Concomitant]
  4. CALTAN (CALCIUM CARBONATE) TABLET [Concomitant]
  5. ANZIEF (ALLOPURINOL) TABLET [Concomitant]
  6. ARGAMATE (CALCIUM POLYSTYRENE SULFONATE) [Concomitant]
  7. NORVASC [Concomitant]

REACTIONS (2)
  - ANAEMIA [None]
  - GASTROINTESTINAL HAEMORRHAGE [None]
